FAERS Safety Report 6557578-1 (Version None)
Quarter: 2010Q1

REPORT INFORMATION
  Report Type: 
  Country: None (occurrence: None)
  Receive Date: 20100129
  Receipt Date: 20100120
  Transmission Date: 20100710
  Serious: Yes (Hospitalization, Other)
  Sender: FDA-Public Use
  Company Number: US-ASTRAZENECA-2009SE08698

PATIENT
  Age: 66 Year
  Sex: Female
  Weight: 59.9 kg

DRUGS (3)
  1. CRESTOR [Suspect]
     Indication: HYPERLIPIDAEMIA
     Route: 048
     Dates: start: 20090318, end: 20090327
  2. PAIN MEDS [Concomitant]
  3. IV ANTIBIOTICS [Concomitant]

REACTIONS (4)
  - AMNESIA [None]
  - INFECTION [None]
  - MENTAL DISORDER [None]
  - PANCREATITIS [None]
